FAERS Safety Report 5166037-2 (Version None)
Quarter: 2006Q4

REPORT INFORMATION
  Report Type: 
  Country: None (occurrence: None)
  Receive Date: 20061128
  Receipt Date: 20061115
  Transmission Date: 20070319
  Serious: Yes (Hospitalization)
  Sender: FDA-Public Use
  Company Number: 2006SS000093

PATIENT
  Age: 44 Year
  Sex: Female
  Weight: 113.3993 kg

DRUGS (33)
  1. MYOBLOC [Suspect]
     Indication: DYSTONIA
     Dosage: SEE IMAGE
     Route: 030
     Dates: start: 20050722, end: 20050722
  2. MYOBLOC [Suspect]
     Indication: OFF LABEL USE
     Dosage: SEE IMAGE
     Route: 030
     Dates: start: 20050722, end: 20050722
  3. MYOBLOC [Suspect]
     Indication: DYSTONIA
     Dosage: SEE IMAGE
     Route: 030
     Dates: start: 20050819, end: 20050819
  4. MYOBLOC [Suspect]
     Indication: OFF LABEL USE
     Dosage: SEE IMAGE
     Route: 030
     Dates: start: 20050819, end: 20050819
  5. MYOBLOC [Suspect]
     Indication: DYSTONIA
     Dosage: SEE IMAGE
     Route: 030
     Dates: start: 20051111, end: 20051111
  6. MYOBLOC [Suspect]
     Indication: OFF LABEL USE
     Dosage: SEE IMAGE
     Route: 030
     Dates: start: 20051111, end: 20051111
  7. MYOBLOC [Suspect]
     Indication: DYSTONIA
     Dosage: SEE IMAGE
     Route: 030
     Dates: start: 20060130, end: 20060130
  8. MYOBLOC [Suspect]
     Indication: OFF LABEL USE
     Dosage: SEE IMAGE
     Route: 030
     Dates: start: 20060130, end: 20060130
  9. MYOBLOC [Suspect]
     Indication: DYSTONIA
     Dosage: SEE IMAGE
     Route: 030
     Dates: start: 20060424, end: 20060424
  10. MYOBLOC [Suspect]
     Indication: OFF LABEL USE
     Dosage: SEE IMAGE
     Route: 030
     Dates: start: 20060424, end: 20060424
  11. MYOBLOC [Suspect]
     Indication: DYSTONIA
     Dosage: SEE IMAGE
     Route: 030
     Dates: start: 20060726, end: 20060726
  12. MYOBLOC [Suspect]
     Indication: OFF LABEL USE
     Dosage: SEE IMAGE
     Route: 030
     Dates: start: 20060726, end: 20060726
  13. MYOBLOC [Suspect]
     Indication: DYSTONIA
     Dosage: SEE IMAGE
     Route: 030
     Dates: start: 20061026, end: 20061026
  14. MYOBLOC [Suspect]
     Indication: OFF LABEL USE
     Dosage: SEE IMAGE
     Route: 030
     Dates: start: 20061026, end: 20061026
  15. BACLOFEN [Suspect]
     Indication: MUSCLE SPASMS
     Dosage: SEE IMAGE  INTH
     Route: 037
     Dates: start: 20061026, end: 20060101
  16. BACLOFEN [Suspect]
     Indication: MUSCLE SPASMS
     Dosage: SEE IMAGE  INTH
     Route: 037
     Dates: end: 20061026
  17. BACLOFEN [Suspect]
     Indication: MUSCLE SPASMS
     Dosage: SEE IMAGE  INTH
     Route: 037
     Dates: start: 20060101
  18. NEURONTIN [Concomitant]
  19. METHADONE HCL [Concomitant]
  20. SYNTHROID [Concomitant]
  21. ZOFRAN [Concomitant]
  22. NORCO [Concomitant]
  23. DETROL [Concomitant]
  24. ZANAFLEX [Concomitant]
  25. AMITRIPTYLINE HCL [Concomitant]
  26. ZOMIG [Concomitant]
  27. DEPAKOTE [Concomitant]
  28. COLACE [Concomitant]
  29. AMBIEN [Concomitant]
  30. MIGRANAL [Concomitant]
  31. OYRICA [Concomitant]
  32. HYCOSAMINE [Concomitant]
  33. HYDROCODONE BITARTRATE [Concomitant]

REACTIONS (9)
  - DIAPHRAGMATIC PARALYSIS [None]
  - DIARRHOEA [None]
  - DIPLOPIA [None]
  - HEADACHE [None]
  - MUSCLE SPASMS [None]
  - OFF LABEL USE [None]
  - PCO2 INCREASED [None]
  - RESPIRATORY RATE DECREASED [None]
  - VOMITING [None]
